FAERS Safety Report 7184551-5 (Version None)
Quarter: 2010Q4

REPORT INFORMATION
  Report Type: 
  Country: None (occurrence: None)
  Receive Date: 20101222
  Receipt Date: 20101213
  Transmission Date: 20110411
  Serious: Yes (Hospitalization, Other)
  Sender: FDA-Public Use
  Company Number: JP-ACTELION-A-CH2010-35034

PATIENT
  Sex: Female
  Weight: 57 kg

DRUGS (14)
  1. BOSENTAN TABLET 62.5 MG JPN [Suspect]
     Indication: PULMONARY HYPERTENSION
     Dosage: 62.5 MG, BID
     Route: 048
     Dates: start: 20090824, end: 20090902
  2. BOSENTAN TABLET 62.5 MG JPN [Interacting]
     Dosage: 62.5 MG, BID
     Route: 048
     Dates: start: 20090905, end: 20090928
  3. BOSENTAN TABLET 62.5 MG JPN [Interacting]
     Dosage: 62.5 MG, BID
     Route: 048
     Dates: start: 20091004, end: 20091007
  4. BOSENTAN TABLET 62.5 MG JPN [Interacting]
     Dosage: 62.5 MG, BID
     Route: 048
     Dates: start: 20091013, end: 20091014
  5. BERAPROST SODIUM [Interacting]
     Dosage: UNK
     Dates: end: 20090902
  6. BERAPROST SODIUM [Interacting]
     Dosage: UNK
     Dates: start: 20090907
  7. DIGOXIN [Concomitant]
  8. CARVEDILOL [Concomitant]
  9. CANDESARTAN CILEXETIL [Concomitant]
  10. TORSEMIDE [Concomitant]
  11. SPIRONOLACTONE [Concomitant]
  12. PIMOBENDAN [Concomitant]
  13. MILRINONE [Concomitant]
  14. OXYGEN [Concomitant]

REACTIONS (10)
  - ABDOMINAL PAIN [None]
  - ATRIAL FIBRILLATION [None]
  - BLOOD PRESSURE DECREASED [None]
  - COUGH [None]
  - DIZZINESS [None]
  - DRUG INTERACTION [None]
  - DRUG TOLERANCE DECREASED [None]
  - FLUSHING [None]
  - HEADACHE [None]
  - MALAISE [None]
